FAERS Safety Report 7287749-0 (Version None)
Quarter: 2011Q1

REPORT INFORMATION
  Report Type: 
  Country: None (occurrence: None)
  Receive Date: 20110207
  Receipt Date: 20110207
  Transmission Date: 20110831
  Serious: Yes (Life-Threatening)
  Sender: FDA-Public Use
  Company Number: None

PATIENT
  Age: 6 Year
  Sex: Male
  Weight: 20.4119 kg

DRUGS (1)
  1. NOVOLOG [Suspect]
     Indication: DIABETES MELLITUS
     Dates: start: 20110201, end: 20110205

REACTIONS (2)
  - HYPOGLYCAEMIA [None]
  - PRODUCT MEASURED POTENCY ISSUE [None]
